FAERS Safety Report 7416655-3 (Version None)
Quarter: 2011Q2

REPORT INFORMATION
  Report Type: 
  Country: None (occurrence: None)
  Receive Date: 20110415
  Receipt Date: 20110406
  Transmission Date: 20111010
  Serious: Yes (Hospitalization)
  Sender: FDA-Public Use
  Company Number: US-BIOGENIDEC-2011BI008476

PATIENT
  Age: 61 Year
  Sex: Male

DRUGS (2)
  1. TYSABRI [Suspect]
     Indication: MULTIPLE SCLEROSIS
     Route: 042
     Dates: start: 20100513, end: 20110118
  2. TYSABRI [Suspect]
     Route: 042
     Dates: start: 20070828, end: 20081024

REACTIONS (5)
  - GENERAL SYMPTOM [None]
  - HALLUCINATION, VISUAL [None]
  - BACTERIURIA [None]
  - NEUROGENIC BLADDER [None]
  - URINARY TRACT INFECTION [None]
